FAERS Safety Report 19468951 (Version 3)
Quarter: 2021Q3

REPORT INFORMATION
  Report Type: Report from Study
  Country: AR (occurrence: AR)
  Receive Date: 20210628
  Receipt Date: 20210730
  Transmission Date: 20211014
  Serious: Yes (Other)
  Sender: FDA-Public Use
  Company Number: NVSC2020AR308954

PATIENT
  Age: 46 Year
  Sex: Female

DRUGS (2)
  1. COSENTYX [Suspect]
     Active Substance: SECUKINUMAB
     Indication: PSORIASIS
  2. COSENTYX [Suspect]
     Active Substance: SECUKINUMAB
     Indication: PSORIATIC ARTHROPATHY
     Dosage: 300 MG, QMO
     Route: 058
     Dates: start: 20190322

REACTIONS (17)
  - Peritonsillar abscess [Unknown]
  - Arthralgia [Not Recovered/Not Resolved]
  - Anosmia [Unknown]
  - Pyrexia [Unknown]
  - Hypokinesia [Unknown]
  - Psoriasis [Not Recovered/Not Resolved]
  - Tonsillitis [Unknown]
  - Fatigue [Unknown]
  - Product supply issue [Unknown]
  - Dyspnoea [Unknown]
  - Ageusia [Unknown]
  - Cough [Unknown]
  - Oropharyngeal pain [Unknown]
  - Psoriatic arthropathy [Unknown]
  - Malaise [Unknown]
  - Pain [Unknown]
  - Secretion discharge [Unknown]

NARRATIVE: CASE EVENT DATE: 202009
